FAERS Safety Report 25710356 (Version 1)
Quarter: 2025Q3

REPORT INFORMATION
  Report Type: Spontaneous
  Country: US (occurrence: None)
  Receive Date: 20250820
  Receipt Date: 20250820
  Transmission Date: 20251021
  Serious: Yes (Hospitalization)
  Sender: FDA-CTU
  Company Number: None

PATIENT
  Age: 63 Year
  Sex: Female

DRUGS (1)
  1. SIMLANDI [Suspect]
     Active Substance: ADALIMUMAB-RYVK

REACTIONS (5)
  - Pulmonary oedema [None]
  - Hyponatraemia [None]
  - General physical health deterioration [None]
  - Illness [None]
  - Cardiac failure congestive [None]

NARRATIVE: CASE EVENT DATE: 20250728
